FAERS Safety Report 17055200 (Version 2)
Quarter: 2019Q4

REPORT INFORMATION
  Report Type: Spontaneous
  Country: US (occurrence: US)
  Receive Date: 20191120
  Receipt Date: 20191126
  Transmission Date: 20200122
  Serious: No
  Sender: FDA-Public Use
  Company Number: US-PFIZER INC-2019501402

PATIENT
  Age: 52 Year
  Sex: Female
  Weight: 68.27 kg

DRUGS (2)
  1. GENOTROPIN MQ [Suspect]
     Active Substance: SOMATROPIN
     Dosage: 0.4 MG, 1X/DAY (SEVEN NIGHTS PER WEEK)
     Route: 058
     Dates: start: 20181106
  2. GENOTROPIN MQ [Suspect]
     Active Substance: SOMATROPIN
     Indication: HYPOPITUITARISM
     Dosage: 0.4 MG, DAILY [EACH NIGHT ]
     Route: 058
     Dates: start: 20181106

REACTIONS (1)
  - Hypersensitivity [Unknown]
